FAERS Safety Report 9442666 (Version 1)
Quarter: 2013Q3

REPORT INFORMATION
  Report Type: Spontaneous
  Country: US (occurrence: None)
  Receive Date: 20130805
  Receipt Date: 20130805
  Transmission Date: 20140515
  Serious: Yes (Hospitalization)
  Sender: FDA-Public Use
  Company Number: None

PATIENT
  Sex: Male

DRUGS (1)
  1. ENBREL SURECLICK 50MG AMGEN INC [Suspect]
     Dates: start: 20130628, end: 20130802

REACTIONS (1)
  - Cryptosporidiosis infection [None]
